FAERS Safety Report 6490051-8 (Version None)
Quarter: 2009Q4

REPORT INFORMATION
  Report Type: 
  Country: None (occurrence: None)
  Receive Date: 20091211
  Receipt Date: 20090824
  Transmission Date: 20100525
  Serious: Yes (Other)
  Sender: FDA-Public Use
  Company Number: PHHY2009JP44492

PATIENT
  Age: 68 Year
  Sex: Female

DRUGS (1)
  1. IMATINIB [Suspect]
     Indication: GASTROINTESTINAL STROMAL TUMOUR
     Dosage: 400 MG, QD
     Route: 048

REACTIONS (4)
  - ANAEMIA [None]
  - DECREASED APPETITE [None]
  - GASTRECTOMY [None]
  - OEDEMA [None]
